FAERS Safety Report 5749761-X (Version None)
Quarter: 2008Q2

REPORT INFORMATION
  Report Type: 
  Country: None (occurrence: None)
  Receive Date: 20080527
  Receipt Date: 20080516
  Transmission Date: 20081010
  Serious: Yes (Death)
  Sender: FDA-Public Use
  Company Number: IT-ELI_LILLY_AND_COMPANY-IT200805003594

PATIENT
  Sex: Male

DRUGS (5)
  1. ALIMTA [Suspect]
     Dosage: 500 MG/M2, UNKNOWN
     Route: 042
     Dates: start: 20080207, end: 20080207
  2. DOBETIN [Concomitant]
     Dosage: 1000 MCG 1ML
     Route: 065
  3. LUCEN [Concomitant]
     Dosage: 20 MG, UNKNOWN
     Route: 048
  4. QUARK [Concomitant]
     Dosage: UNK, UNKNOWN
     Route: 065
  5. OMNIC [Concomitant]
     Dosage: 0.4 MG, UNKNOWN
     Route: 048

REACTIONS (1)
  - HAEMOLYTIC ANAEMIA [None]
